FAERS Safety Report 7018628-1 (Version None)
Quarter: 2010Q3

REPORT INFORMATION
  Report Type: 
  Country: None (occurrence: None)
  Receive Date: 20100928
  Receipt Date: 20100917
  Transmission Date: 20110219
  Serious: Yes (Other)
  Sender: FDA-Public Use
  Company Number: JP-MERCK-1009USA04316

PATIENT
  Age: 51 Year
  Sex: Male

DRUGS (1)
  1. PEPCID [Suspect]
     Route: 048
     Dates: start: 20090201, end: 20090201

REACTIONS (1)
  - STEVENS-JOHNSON SYNDROME [None]
